FAERS Safety Report 4812676-5 (Version None)
Quarter: 2005Q4

REPORT INFORMATION
  Report Type: 
  Country: None (occurrence: None)
  Receive Date: 20051028
  Receipt Date: 20041105
  Transmission Date: 20060501
  Serious: No
  Sender: FDA-Public Use
  Company Number: US-GLAXOSMITHKLINE-A0532852A

PATIENT
  Age: 46 Year
  Sex: Male

DRUGS (5)
  1. ADVAIR DISKUS 100/50 [Suspect]
     Indication: ASTHMA
     Dates: start: 20040701
  2. SINGULAIR [Concomitant]
  3. PREVACID [Concomitant]
  4. LIPITOR [Concomitant]
  5. ALBUTEROL [Concomitant]

REACTIONS (1)
  - DRUG INEFFECTIVE [None]
